FAERS Safety Report 7863248-X (Version None)
Quarter: 2011Q4

REPORT INFORMATION
  Report Type: 
  Country: None (occurrence: None)
  Receive Date: 20111027
  Receipt Date: 20101130
  Transmission Date: 20120403
  Serious: No
  Sender: FDA-Public Use
  Company Number: US-AMGEN-USASP2010006991

PATIENT
  Sex: Female

DRUGS (3)
  1. HUMIRA [Concomitant]
     Dosage: UNK
     Dates: start: 20100101
  2. METHOTREXATE [Concomitant]
  3. ENBREL [Suspect]
     Indication: PSORIATIC ARTHROPATHY
     Dosage: 50 MG, QWK
     Dates: start: 20091211, end: 20101001

REACTIONS (4)
  - VOMITING [None]
  - DRUG INEFFECTIVE [None]
  - DIARRHOEA [None]
  - NAUSEA [None]
